FAERS Safety Report 19770952 (Version 1)
Quarter: 2021Q3

REPORT INFORMATION
  Report Type: Spontaneous
  Country: US (occurrence: US)
  Receive Date: 20210901
  Receipt Date: 20210901
  Transmission Date: 20211014
  Serious: No
  Sender: FDA-Public Use
  Company Number: None

PATIENT
  Age: 27 Year
  Sex: Female
  Weight: 54 kg

DRUGS (1)
  1. REGEN?COV [Suspect]
     Active Substance: CASIRIVIMAB\IMDEVIMAB
     Indication: COVID-19
     Dosage: ?          OTHER FREQUENCY:ONCE;?
     Route: 041
     Dates: start: 20210825

REACTIONS (7)
  - Nausea [None]
  - Infusion related reaction [None]
  - Feeling hot [None]
  - Vision blurred [None]
  - Dyspnoea [None]
  - Refusal of treatment by patient [None]
  - Chest discomfort [None]

NARRATIVE: CASE EVENT DATE: 20210825
